FAERS Safety Report 17818808 (Version 3)
Quarter: 2020Q3

REPORT INFORMATION
  Report Type: Spontaneous
  Country: US (occurrence: US)
  Receive Date: 20200522
  Receipt Date: 20200716
  Transmission Date: 20201102
  Serious: No
  Sender: FDA-Public Use
  Company Number: US-THERATECHNOLOGIES EUROPE LIMITED-2020-THE-IBA-000101

PATIENT
  Sex: Male

DRUGS (8)
  1. TROGARZO [Suspect]
     Active Substance: IBALIZUMAB-UIYK
     Dosage: UNK
     Route: 042
  2. TROGARZO [Suspect]
     Active Substance: IBALIZUMAB-UIYK
     Dosage: UNK
     Route: 042
  3. VITAMINS NOS [Concomitant]
     Active Substance: VITAMINS
     Indication: VITAMIN SUPPLEMENTATION
     Dosage: UNK
  4. TROGARZO [Suspect]
     Active Substance: IBALIZUMAB-UIYK
     Dosage: UNK
     Route: 042
  5. TROGARZO [Suspect]
     Active Substance: IBALIZUMAB-UIYK
     Dosage: UNK
     Route: 042
     Dates: start: 20200708
  6. TROGARZO [Suspect]
     Active Substance: IBALIZUMAB-UIYK
     Dosage: UNK
     Route: 042
  7. TROGARZO [Suspect]
     Active Substance: IBALIZUMAB-UIYK
     Indication: HIV INFECTION
     Dosage: UNK
     Route: 042
     Dates: start: 20200415
  8. TROGARZO [Suspect]
     Active Substance: IBALIZUMAB-UIYK
     Dosage: UNK
     Route: 042

REACTIONS (4)
  - Vomiting [Unknown]
  - Fatigue [Unknown]
  - Paraesthesia [Recovered/Resolved]
  - Hypoaesthesia [Recovered/Resolved]
